FAERS Safety Report 18466489 (Version 1)
Quarter: 2020Q4

REPORT INFORMATION
  Report Type: Spontaneous
  Country: DE (occurrence: DE)
  Receive Date: 20201105
  Receipt Date: 20201105
  Transmission Date: 20210114
  Serious: Yes (Other)
  Sender: FDA-Public Use
  Company Number: DE-B.I. PHARMACEUTICALS,INC./RIDGEFIELD-2020-BI-058250

PATIENT
  Age: 79 Year
  Sex: Male

DRUGS (6)
  1. RIVAROXABAN [Suspect]
     Active Substance: RIVAROXABAN
     Indication: CARDIAC FAILURE
     Dosage: 20 MG (1-0-0)
     Dates: start: 202007
  2. TORASEMIDE [Suspect]
     Active Substance: TORSEMIDE
     Indication: CARDIAC FAILURE
     Dosage: 10 MG (1-0-0)
     Dates: start: 202007
  3. MICARDIS [Suspect]
     Active Substance: TELMISARTAN
     Indication: CARDIAC FAILURE
     Dosage: 20 MG (1-0-0)
     Dates: start: 202007
  4. FINASTERIDE. [Suspect]
     Active Substance: FINASTERIDE
     Indication: CARDIAC FAILURE
     Dosage: 5 MG (0-0-1)
     Dates: start: 202007
  5. BISOPROLOL [Suspect]
     Active Substance: BISOPROLOL
     Indication: CARDIAC FAILURE
     Dosage: 5 MG -0- 7.5 MG
     Dates: start: 202007
  6. MOXONIDINE [Suspect]
     Active Substance: MOXONIDINE
     Indication: CARDIAC FAILURE
     Dosage: 1-0-1
     Dates: start: 202007

REACTIONS (7)
  - Listless [Unknown]
  - Panic attack [Unknown]
  - Limb discomfort [Unknown]
  - Dyspnoea [Unknown]
  - Pulmonary oedema [Unknown]
  - Angina pectoris [Unknown]
  - Asthenia [Unknown]

NARRATIVE: CASE EVENT DATE: 2020
